FAERS Safety Report 24823695 (Version 1)
Quarter: 2025Q1

REPORT INFORMATION
  Report Type: Spontaneous
  Country: US (occurrence: US)
  Receive Date: 20250109
  Receipt Date: 20250109
  Transmission Date: 20250409
  Serious: No
  Sender: NOVITIUM PHARMA
  Company Number: US-NOVITIUMPHARMA-2025USNVP00055

PATIENT
  Age: 50 Year
  Sex: Female
  Weight: 185 kg

DRUGS (1)
  1. ESTRADIOL [Suspect]
     Active Substance: ESTRADIOL
     Indication: Hot flush
     Dates: start: 20241229

REACTIONS (4)
  - Peripheral swelling [Unknown]
  - Paraesthesia [Unknown]
  - Arthralgia [Unknown]
  - Pain in extremity [Unknown]
